FAERS Safety Report 24622637 (Version 2)
Quarter: 2024Q4

REPORT INFORMATION
  Report Type: Spontaneous
  Country: US (occurrence: US)
  Receive Date: 20241115
  Receipt Date: 20241210
  Transmission Date: 20250114
  Serious: No
  Sender: HETERO
  Company Number: US-HETERO-HET2024US04122

PATIENT
  Age: 30 Year
  Sex: Male
  Weight: 79.365 kg

DRUGS (1)
  1. SILDENAFIL [Suspect]
     Active Substance: SILDENAFIL
     Indication: Sexual dysfunction
     Dosage: 50 MILLIGRAM, QD
     Route: 048
     Dates: start: 20241030

REACTIONS (1)
  - Drug ineffective [Unknown]

NARRATIVE: CASE EVENT DATE: 20241030
